FAERS Safety Report 20282327 (Version 1)
Quarter: 2022Q1

REPORT INFORMATION
  Report Type: Spontaneous
  Country: US (occurrence: None)
  Receive Date: 20220101
  Receipt Date: 20220101
  Transmission Date: 20220423
  Serious: Yes (Hospitalization)
  Sender: FDA-Public Use
  Company Number: None

PATIENT
  Age: 67 Year
  Sex: Male

DRUGS (1)
  1. THEOPHYLLINE [Suspect]
     Active Substance: THEOPHYLLINE
     Dates: start: 20211213

REACTIONS (3)
  - Supraventricular tachycardia [None]
  - Palpitations [None]
  - Palpitations [None]

NARRATIVE: CASE EVENT DATE: 20211224
